FAERS Safety Report 8435873-9 (Version None)
Quarter: 2012Q2

REPORT INFORMATION
  Report Type: 
  Country: None (occurrence: None)
  Receive Date: 20120607
  Receipt Date: 20120607
  Transmission Date: 20120825
  Serious: Yes (Other)
  Sender: FDA-Public Use
  Company Number: None

PATIENT
  Age: 30 Year
  Sex: Female
  Weight: 55.7924 kg

DRUGS (1)
  1. SPRINTEC [Suspect]
     Indication: CONTRACEPTION
     Dosage: 28 DAILY PO
     Route: 048
     Dates: start: 20120103, end: 20120505

REACTIONS (5)
  - DRUG PRESCRIBING ERROR [None]
  - FIBROADENOMA OF BREAST [None]
  - BREAST ABSCESS [None]
  - MASTITIS [None]
  - DRUG HYPERSENSITIVITY [None]
